FAERS Safety Report 7241070-5 (Version None)
Quarter: 2011Q1

REPORT INFORMATION
  Report Type: 
  Country: None (occurrence: None)
  Receive Date: 20110120
  Receipt Date: 20110120
  Transmission Date: 20110831
  Serious: Yes (Other)
  Sender: FDA-Public Use
  Company Number: None

PATIENT
  Age: 46 Year
  Sex: Female
  Weight: 65.7716 kg

DRUGS (2)
  1. ACETAMINOPHEN W/ PROPOXYPHENE HCL [Suspect]
     Indication: PAIN
     Dosage: 650 MG  1 TABKET 4-6 HRS RX C695897
     Dates: start: 20101017, end: 20101022
  2. ACETAMINOPHEN W/ PROPOXYPHENE HCL [Suspect]
     Indication: PAIN
     Dosage: 650 MG  1 TABKET 4-6 HRS RX C695897
     Dates: start: 20100922, end: 20100924

REACTIONS (7)
  - SYNCOPE [None]
  - PALPITATIONS [None]
  - IMPAIRED WORK ABILITY [None]
  - ACTIVITIES OF DAILY LIVING IMPAIRED [None]
  - PAIN [None]
  - ANXIETY [None]
  - DIZZINESS [None]
